FAERS Safety Report 5590769-5 (Version None)
Quarter: 2008Q1

REPORT INFORMATION
  Report Type: 
  Country: None (occurrence: None)
  Receive Date: 20080114
  Receipt Date: 20080103
  Transmission Date: 20080703
  Serious: Yes (Other)
  Sender: FDA-Public Use
  Company Number: US-PFIZER INC-2008002026

PATIENT
  Sex: Male
  Weight: 82.7 kg

DRUGS (2)
  1. CHANTIX [Suspect]
     Indication: SMOKING CESSATION THERAPY
  2. SIMVASTATIN [Concomitant]

REACTIONS (1)
  - HALLUCINATION, AUDITORY [None]
